FAERS Safety Report 10332630 (Version 1)
Quarter: 2014Q3

REPORT INFORMATION
  Report Type: Spontaneous
  Country: US (occurrence: US)
  Receive Date: 20140722
  Receipt Date: 20140722
  Transmission Date: 20150326
  Serious: No
  Sender: FDA-Public Use
  Company Number: US-UNITED THERAPEUTICS-UTC-042107

PATIENT
  Sex: Female

DRUGS (4)
  1. TYVASO [Suspect]
     Active Substance: TREPROSTINIL
  2. ERGOCALCIFEROL. [Concomitant]
     Active Substance: ERGOCALCIFEROL
  3. TYVASO [Suspect]
     Active Substance: TREPROSTINIL
     Dates: start: 2013
  4. FOSAMAX [Concomitant]
     Active Substance: ALENDRONATE SODIUM

REACTIONS (10)
  - Coeliac disease [Not Recovered/Not Resolved]
  - Haemoglobin decreased [Recovering/Resolving]
  - Hypersensitivity [Recovering/Resolving]
  - Peripheral swelling [Recovered/Resolved]
  - Vitamin D decreased [Recovering/Resolving]
  - Bone erosion [Recovering/Resolving]
  - Pain in jaw [Unknown]
  - Diarrhoea [Unknown]
  - Rhinorrhoea [Unknown]
  - Alopecia [Recovering/Resolving]

NARRATIVE: CASE EVENT DATE: 2013
